FAERS Safety Report 25106955 (Version 1)
Quarter: 2025Q1

REPORT INFORMATION
  Report Type: Spontaneous
  Country: HR (occurrence: HR)
  Receive Date: 20250321
  Receipt Date: 20250321
  Transmission Date: 20250409
  Serious: Yes (Other)
  Sender: MYLAN
  Company Number: None

PATIENT
  Age: 14 Year
  Sex: Female
  Weight: 45 kg

DRUGS (24)
  1. ATORVASTATIN [Suspect]
     Active Substance: ATORVASTATIN
     Indication: Product used for unknown indication
     Dosage: 700 MILLIGRAM, QD
     Dates: start: 20250122, end: 20250122
  2. ATORVASTATIN [Suspect]
     Active Substance: ATORVASTATIN
     Dosage: 700 MILLIGRAM, QD
     Route: 048
     Dates: start: 20250122, end: 20250122
  3. ATORVASTATIN [Suspect]
     Active Substance: ATORVASTATIN
     Dosage: 700 MILLIGRAM, QD
     Route: 048
     Dates: start: 20250122, end: 20250122
  4. ATORVASTATIN [Suspect]
     Active Substance: ATORVASTATIN
     Dosage: 700 MILLIGRAM, QD
     Dates: start: 20250122, end: 20250122
  5. BIPERIDEN [Suspect]
     Active Substance: BIPERIDEN
     Indication: Product used for unknown indication
     Dosage: 120 MILLIGRAM, QD
     Dates: start: 20250122, end: 20250122
  6. BIPERIDEN [Suspect]
     Active Substance: BIPERIDEN
     Dosage: 120 MILLIGRAM, QD
     Route: 048
     Dates: start: 20250122, end: 20250122
  7. BIPERIDEN [Suspect]
     Active Substance: BIPERIDEN
     Dosage: 120 MILLIGRAM, QD
     Route: 048
     Dates: start: 20250122, end: 20250122
  8. BIPERIDEN [Suspect]
     Active Substance: BIPERIDEN
     Dosage: 120 MILLIGRAM, QD
     Dates: start: 20250122, end: 20250122
  9. FLUOXETINE HYDROCHLORIDE [Suspect]
     Active Substance: FLUOXETINE HYDROCHLORIDE
     Indication: Product used for unknown indication
     Dosage: 560 MILLIGRAM, QD
     Dates: start: 20250122, end: 20250122
  10. FLUOXETINE HYDROCHLORIDE [Suspect]
     Active Substance: FLUOXETINE HYDROCHLORIDE
     Dosage: 560 MILLIGRAM, QD
     Route: 048
     Dates: start: 20250122, end: 20250122
  11. FLUOXETINE HYDROCHLORIDE [Suspect]
     Active Substance: FLUOXETINE HYDROCHLORIDE
     Dosage: 560 MILLIGRAM, QD
     Route: 048
     Dates: start: 20250122, end: 20250122
  12. FLUOXETINE HYDROCHLORIDE [Suspect]
     Active Substance: FLUOXETINE HYDROCHLORIDE
     Dosage: 560 MILLIGRAM, QD
     Dates: start: 20250122, end: 20250122
  13. RISPERIDONE [Suspect]
     Active Substance: RISPERIDONE
     Indication: Product used for unknown indication
     Dosage: 40 MILLIGRAM, QD
     Dates: start: 20250122, end: 20250122
  14. RISPERIDONE [Suspect]
     Active Substance: RISPERIDONE
     Dosage: 40 MILLIGRAM, QD
     Route: 048
     Dates: start: 20250122, end: 20250122
  15. RISPERIDONE [Suspect]
     Active Substance: RISPERIDONE
     Dosage: 40 MILLIGRAM, QD
     Route: 048
     Dates: start: 20250122, end: 20250122
  16. RISPERIDONE [Suspect]
     Active Substance: RISPERIDONE
     Dosage: 40 MILLIGRAM, QD
     Dates: start: 20250122, end: 20250122
  17. DIAZEPAM [Suspect]
     Active Substance: DIAZEPAM
     Indication: Product used for unknown indication
     Dosage: 60 MILLIGRAM, QD
     Dates: start: 20250122, end: 20250122
  18. DIAZEPAM [Suspect]
     Active Substance: DIAZEPAM
     Dosage: 60 MILLIGRAM, QD
     Route: 048
     Dates: start: 20250122, end: 20250122
  19. DIAZEPAM [Suspect]
     Active Substance: DIAZEPAM
     Dosage: 60 MILLIGRAM, QD
     Route: 048
     Dates: start: 20250122, end: 20250122
  20. DIAZEPAM [Suspect]
     Active Substance: DIAZEPAM
     Dosage: 60 MILLIGRAM, QD
     Dates: start: 20250122, end: 20250122
  21. ACETAMINOPHEN\TRAMADOL HYDROCHLORIDE [Suspect]
     Active Substance: ACETAMINOPHEN\TRAMADOL HYDROCHLORIDE
     Indication: Product used for unknown indication
     Dosage: 10 DOSAGE FORM, QD (1 {DF} = TRAMADOL 37 MG + PARACETAMOL 325 MG)
     Dates: start: 20250122, end: 20250122
  22. ACETAMINOPHEN\TRAMADOL HYDROCHLORIDE [Suspect]
     Active Substance: ACETAMINOPHEN\TRAMADOL HYDROCHLORIDE
     Dosage: 10 DOSAGE FORM, QD (1 {DF} = TRAMADOL 37 MG + PARACETAMOL 325 MG)
     Route: 048
     Dates: start: 20250122, end: 20250122
  23. ACETAMINOPHEN\TRAMADOL HYDROCHLORIDE [Suspect]
     Active Substance: ACETAMINOPHEN\TRAMADOL HYDROCHLORIDE
     Dosage: 10 DOSAGE FORM, QD (1 {DF} = TRAMADOL 37 MG + PARACETAMOL 325 MG)
     Route: 048
     Dates: start: 20250122, end: 20250122
  24. ACETAMINOPHEN\TRAMADOL HYDROCHLORIDE [Suspect]
     Active Substance: ACETAMINOPHEN\TRAMADOL HYDROCHLORIDE
     Dosage: 10 DOSAGE FORM, QD (1 {DF} = TRAMADOL 37 MG + PARACETAMOL 325 MG)
     Dates: start: 20250122, end: 20250122

REACTIONS (4)
  - Suicide attempt [Unknown]
  - Loss of consciousness [Unknown]
  - Heart rate increased [Unknown]
  - Intentional overdose [Unknown]

NARRATIVE: CASE EVENT DATE: 20250122
